FAERS Safety Report 18192838 (Version 3)
Quarter: 2022Q2

REPORT INFORMATION
  Report Type: Report from Study
  Country: NL (occurrence: NL)
  Receive Date: 20200825
  Receipt Date: 20220411
  Transmission Date: 20220721
  Serious: Yes (Other)
  Sender: FDA-Public Use
  Company Number: NL-MYLANLABS-2019M1129296

PATIENT
  Sex: Female

DRUGS (1)
  1. GLATIRAMER ACETATE [Suspect]
     Active Substance: GLATIRAMER ACETATE
     Indication: Relapsing-remitting multiple sclerosis
     Dosage: UNK UNK, 3XW
     Route: 058
     Dates: end: 2020

REACTIONS (3)
  - Multiple sclerosis [Not Recovered/Not Resolved]
  - COVID-19 [Recovered/Resolved]
  - Skin reaction [Not Recovered/Not Resolved]

NARRATIVE: CASE EVENT DATE: 20200722
